FAERS Safety Report 6121379-9 (Version None)
Quarter: 2009Q1

REPORT INFORMATION
  Report Type: 
  Country: None (occurrence: None)
  Receive Date: 20090313
  Receipt Date: 20090227
  Transmission Date: 20090719
  Serious: Yes (Death)
  Sender: FDA-Public Use
  Company Number: 09-005C

PATIENT
  Age: 40 Year
  Sex: Female

DRUGS (7)
  1. BUTALBITAL, ACETAMINOPHEN AND CAFFEINE 50/ 325/ 40MG CAPSULES [Suspect]
     Dosage: ORAL
     Route: 048
  2. DIDANOSINE [Suspect]
     Dosage: ORAL
     Route: 048
  3. RITONAVIR [Suspect]
     Dosage: ORAL
     Route: 048
  4. ATAZANAVIR SULFATE [Suspect]
     Dosage: ORAL
     Route: 048
  5. EMTRICITABINE/ TENOFOVIR [Suspect]
     Dosage: ORAL
     Route: 048
  6. TRIMETHOPRIM + SULFAMETHOXAZOLE [Suspect]
     Dosage: ORAL
     Route: 048
  7. HYDROMOPHONE [Suspect]
     Dosage: ORAL
     Route: 048

REACTIONS (4)
  - CARDIAC ARREST [None]
  - COMPLETED SUICIDE [None]
  - MULTIPLE DRUG OVERDOSE INTENTIONAL [None]
  - RESPIRATORY ARREST [None]
